FAERS Safety Report 11758398 (Version 1)
Quarter: 2015Q4

REPORT INFORMATION
  Report Type: Spontaneous
  Country: US (occurrence: None)
  Receive Date: 20151118
  Receipt Date: 20151118
  Transmission Date: 20160304
  Serious: Yes (Hospitalization)
  Sender: FDA-Public Use
  Company Number: None

PATIENT
  Age: 26 Year
  Sex: Female
  Weight: 83.92 kg

DRUGS (3)
  1. IBUPROFEN. [Concomitant]
     Active Substance: IBUPROFEN
  2. LAMICTAL [Concomitant]
     Active Substance: LAMOTRIGINE
  3. METRONIDAZOLE. [Suspect]
     Active Substance: METRONIDAZOLE
     Indication: BACTERIAL VAGINOSIS
     Dosage: 1 PILL
     Route: 048
     Dates: start: 20151113, end: 20151116

REACTIONS (8)
  - Vertigo [None]
  - Paraesthesia [None]
  - Disorientation [None]
  - Hypoaesthesia [None]
  - Chills [None]
  - Abdominal pain upper [None]
  - Dizziness [None]
  - Migraine [None]

NARRATIVE: CASE EVENT DATE: 20151116
